FAERS Safety Report 24444030 (Version 2)
Quarter: 2024Q4

REPORT INFORMATION
  Report Type: Report from Study
  Country: US (occurrence: US)
  Receive Date: 20241016
  Receipt Date: 20241017
  Transmission Date: 20250115
  Serious: No
  Sender: ROCHE
  Company Number: US-ROCHE-2343706

PATIENT
  Age: 37 Year
  Sex: Female
  Weight: 73.03 kg

DRUGS (13)
  1. RITUXAN [Suspect]
     Active Substance: RITUXIMAB
     Indication: Multiple sclerosis
     Dosage: END DATE: 31/DEC/2022?DAY 1 AND DAY 15 AND THEN EVERY 6 MONTHS?ANTICIPATED DATE OF TREATMENT: /SEP/2
     Route: 042
     Dates: start: 20220304
  2. RITUXAN [Suspect]
     Active Substance: RITUXIMAB
     Indication: Optic neuritis
     Dosage: DATE OF TREATMENT- 3/3/2023
     Route: 042
  3. RITUXAN [Suspect]
     Active Substance: RITUXIMAB
     Indication: Neuromyelitis optica spectrum disorder
  4. XANAX [Concomitant]
     Active Substance: ALPRAZOLAM
     Route: 048
     Dates: start: 20220202
  5. VITAMIN D3 [Concomitant]
     Active Substance: CHOLECALCIFEROL
     Route: 048
     Dates: start: 20220211
  6. FLEXERIL [Concomitant]
     Active Substance: CYCLOBENZAPRINE HYDROCHLORIDE
     Route: 048
  7. MOTRIN [Concomitant]
     Active Substance: IBUPROFEN
     Route: 048
  8. MELATONIN [Concomitant]
     Active Substance: MELATONIN
     Route: 048
  9. FISH OIL [Concomitant]
     Active Substance: FISH OIL
  10. PRILOSEC [Concomitant]
     Active Substance: OMEPRAZOLE MAGNESIUM
  11. ZANAFLEX [Concomitant]
     Active Substance: TIZANIDINE HYDROCHLORIDE
  12. HERBALS\TURMERIC [Concomitant]
     Active Substance: HERBALS\TURMERIC
  13. PREDNISONE [Concomitant]
     Active Substance: PREDNISONE
     Route: 048

REACTIONS (8)
  - Off label use [Unknown]
  - Visual impairment [Unknown]
  - Greater trochanteric pain syndrome [Unknown]
  - Arthralgia [Unknown]
  - Fatigue [Unknown]
  - Ocular hyperaemia [Unknown]
  - Eye pain [Unknown]
  - Maternal exposure timing unspecified [Unknown]
